FAERS Safety Report 4646605-4 (Version None)
Quarter: 2005Q2

REPORT INFORMATION
  Report Type: 
  Country: None (occurrence: None)
  Receive Date: 20050426
  Receipt Date: 20050309
  Transmission Date: 20051028
  Serious: Yes (Death)
  Sender: FDA-Public Use
  Company Number: 2005S1001103

PATIENT
  Age: 48 Year
  Sex: Male

DRUGS (9)
  1. CLOZAPINE [Suspect]
     Indication: SCHIZOPHRENIA
     Dosage: SEE IMAGE
     Route: 048
     Dates: end: 20050224
  2. CLOZAPINE [Suspect]
     Indication: SCHIZOPHRENIA
     Dosage: SEE IMAGE
     Route: 048
     Dates: end: 20050224
  3. GLYCOPYRONIUM BROMIDE [Concomitant]
  4. RISPERIDONE [Concomitant]
  5. NICOTINE [Concomitant]
  6. LORAZEPAM [Concomitant]
  7. SENNA [Concomitant]
  8. PARACETAMOL [Concomitant]
  9. PSEUDOEPHEDRINE HYDROCHLORIDE [Concomitant]

REACTIONS (2)
  - LARYNGEAL CANCER [None]
  - METASTATIC NEOPLASM [None]
